FAERS Safety Report 19187313 (Version 6)
Quarter: 2021Q4

REPORT INFORMATION
  Report Type: Report from Study
  Country: ZA (occurrence: ZA)
  Receive Date: 20210427
  Receipt Date: 20211103
  Transmission Date: 20220303
  Serious: Yes (Hospitalization)
  Sender: FDA-Public Use
  Company Number: ZA-ABBVIE-21P-143-3867501-00

PATIENT
  Age: 68 Year
  Sex: Female

DRUGS (21)
  1. PLACEBO [Suspect]
     Active Substance: UNSPECIFIED INGREDIENT
     Indication: Rheumatoid arthritis
     Route: 065
     Dates: start: 20170412, end: 20170717
  2. UPADACITINIB [Suspect]
     Active Substance: UPADACITINIB
     Indication: Rheumatoid arthritis
     Route: 048
     Dates: start: 20170718, end: 20180821
  3. UPADACITINIB [Suspect]
     Active Substance: UPADACITINIB
     Indication: Rheumatoid arthritis
     Route: 048
     Dates: start: 20180822, end: 20210411
  4. UPADACITINIB [Suspect]
     Active Substance: UPADACITINIB
     Route: 048
     Dates: start: 20210629
  5. PHARMAPRESS [Concomitant]
     Indication: Hypertension
     Route: 048
     Dates: start: 1991
  6. AMLODIPINE [Concomitant]
     Active Substance: AMLODIPINE BESYLATE
     Indication: Hypertension
     Route: 048
     Dates: start: 201702
  7. PROPRANOLOL [Concomitant]
     Active Substance: PROPRANOLOL HYDROCHLORIDE
     Indication: Palpitations
     Route: 048
     Dates: start: 2015
  8. FOLIC ACID [Concomitant]
     Active Substance: FOLIC ACID
     Indication: Vitamin supplementation
     Route: 048
     Dates: start: 2009
  9. CALCIFEROL [Concomitant]
     Indication: Prophylaxis
     Route: 048
     Dates: start: 2013
  10. CALCIUM CARBONATE [Concomitant]
     Active Substance: CALCIUM CARBONATE
     Indication: Prophylaxis
     Route: 048
     Dates: start: 2013
  11. AMITRIPTYLINE [Concomitant]
     Active Substance: AMITRIPTYLINE
     Indication: Depression
     Route: 048
     Dates: start: 1991
  12. OMEPRAZOLE [Concomitant]
     Active Substance: OMEPRAZOLE
     Indication: Gastrooesophageal reflux disease
     Route: 048
     Dates: start: 1991, end: 20210413
  13. LORAZEPAM [Concomitant]
     Active Substance: LORAZEPAM
     Indication: Anxiety
     Route: 048
     Dates: start: 2015
  14. SIMVASTATIN [Concomitant]
     Active Substance: SIMVASTATIN
     Indication: Hypercholesterolaemia
     Route: 048
     Dates: start: 2012
  15. ALLOPURINOL [Concomitant]
     Active Substance: ALLOPURINOL
     Indication: Gout
     Route: 048
     Dates: start: 20170706, end: 20210413
  16. NAFASOL [Concomitant]
     Indication: Rheumatoid arthritis
     Route: 048
     Dates: start: 201612
  17. METHOTREXATE [Concomitant]
     Active Substance: METHOTREXATE
     Indication: Rheumatoid arthritis
     Route: 048
     Dates: start: 2009, end: 20180611
  18. METHOTREXATE [Concomitant]
     Active Substance: METHOTREXATE
     Route: 048
     Dates: start: 20180627
  19. ALENDRONIC ACID [Concomitant]
     Active Substance: ALENDRONIC ACID
     Indication: Osteoporosis
     Route: 048
     Dates: start: 20180821
  20. FERRIMED [Concomitant]
     Indication: Iron deficiency anaemia
     Route: 048
     Dates: start: 20190821
  21. CITALOPRAM [Concomitant]
     Active Substance: CITALOPRAM HYDROBROMIDE
     Indication: Depression
     Route: 048
     Dates: start: 20190918

REACTIONS (1)
  - Cellulitis [Not Recovered/Not Resolved]

NARRATIVE: CASE EVENT DATE: 20210406
